FAERS Safety Report 15363609 (Version 2)
Quarter: 2018Q4

REPORT INFORMATION
  Report Type: Spontaneous
  Country: US (occurrence: US)
  Receive Date: 20180907
  Receipt Date: 20181109
  Transmission Date: 20190204
  Serious: Yes (Other)
  Sender: FDA-Public Use
  Company Number: US-009507513-1809USA002051

PATIENT
  Age: 24 Year
  Sex: Female
  Weight: 93.42 kg

DRUGS (1)
  1. IMPLANON [Suspect]
     Active Substance: ETONOGESTREL
     Dosage: 1 ROD, UNK
     Route: 059
     Dates: start: 2010

REACTIONS (5)
  - Complication associated with device [Not Recovered/Not Resolved]
  - Weight decreased [Not Recovered/Not Resolved]
  - Ovarian mass [Unknown]
  - Cerebrovascular accident [Unknown]
  - Incorrect product administration duration [Unknown]

NARRATIVE: CASE EVENT DATE: 2013
